FAERS Safety Report 11441538 (Version 2)
Quarter: 2016Q3

REPORT INFORMATION
  Report Type: Spontaneous
  Country: TR (occurrence: TR)
  Receive Date: 20150901
  Receipt Date: 20160718
  Transmission Date: 20161109
  Serious: Yes (Hospitalization, Other)
  Sender: FDA-Public Use
  Company Number: TR-SUN PHARMACEUTICAL INDUSTRIES LTD-2015R1-102178

PATIENT
  Age: 24 Year
  Sex: Female

DRUGS (1)
  1. VENTOLIN [Suspect]
     Active Substance: ALBUTEROL SULFATE
     Indication: SUICIDE ATTEMPT
     Dosage: UNK
     Route: 065

REACTIONS (7)
  - Suicide attempt [Unknown]
  - Ventricular fibrillation [Recovered/Resolved]
  - Anxiety [Unknown]
  - Supraventricular tachycardia [Unknown]
  - Loss of consciousness [Unknown]
  - Drug abuse [Unknown]
  - Alkalosis hypokalaemic [Recovering/Resolving]
